FAERS Safety Report 5738375-3 (Version None)
Quarter: 2008Q2

REPORT INFORMATION
  Report Type: 
  Country: None (occurrence: None)
  Receive Date: 20080513
  Receipt Date: 20080428
  Transmission Date: 20081010
  Serious: Yes (Hospitalization)
  Sender: FDA-Public Use
  Company Number: B0519419A

PATIENT
  Age: 36 Year
  Sex: Female

DRUGS (6)
  1. LAMOTRIGINE [Suspect]
     Indication: ANXIETY
  2. WELLBUTRIN [Suspect]
  3. PHENOXYMETHYLPENICILLIN [Suspect]
  4. LEVOTHYROXINE SODIUM [Concomitant]
  5. ORTHO TRI-CYCLEN [Concomitant]
  6. SULFONAMIDE [Suspect]

REACTIONS (4)
  - ANXIETY [None]
  - CONDITION AGGRAVATED [None]
  - HYPERSENSITIVITY [None]
  - MENINGITIS ASEPTIC [None]
